FAERS Safety Report 25390964 (Version 1)
Quarter: 2025Q2

REPORT INFORMATION
  Report Type: Spontaneous
  Country: RU (occurrence: RU)
  Receive Date: 20250603
  Receipt Date: 20250603
  Transmission Date: 20250716
  Serious: Yes (Other)
  Sender: AMGEN
  Company Number: RU-AMGEN-RUSSP2025105432

PATIENT

DRUGS (2)
  1. ROMIPLOSTIM [Suspect]
     Active Substance: ROMIPLOSTIM
     Indication: Wiskott-Aldrich syndrome
     Dosage: UNK UNK, QWK (9-10 UG/KG)
     Route: 058
  2. ROMIPLOSTIM [Suspect]
     Active Substance: ROMIPLOSTIM
     Indication: Thrombocytopenia

REACTIONS (4)
  - Gastrointestinal haemorrhage [Unknown]
  - Enterocolitis viral [Unknown]
  - Haemorrhage [Unknown]
  - Loss of therapeutic response [Unknown]
